FAERS Safety Report 6388427-2 (Version None)
Quarter: 2009Q4

REPORT INFORMATION
  Report Type: 
  Country: None (occurrence: None)
  Receive Date: 20091001
  Receipt Date: 20091001
  Transmission Date: 20100525
  Serious: Yes (Life-Threatening, Hospitalization, Other)
  Sender: FDA-Public Use
  Company Number: None

PATIENT
  Sex: Female

DRUGS (1)
  1. BACTRIM [Suspect]
     Indication: CELLULITIS
     Dosage: DS 1 TAB BID PO
     Route: 048
     Dates: start: 20090916, end: 20090926

REACTIONS (1)
  - TOXIC EPIDERMAL NECROLYSIS [None]
